FAERS Safety Report 8755861 (Version 2)
Quarter: 2012Q4

REPORT INFORMATION
  Report Type: Report from Study
  Country: KR (occurrence: KR)
  Receive Date: 20120827
  Receipt Date: 20120929
  Transmission Date: 20130627
  Serious: Yes (Hospitalization)
  Sender: FDA-Public Use
  Company Number: KR-009507513-1206USA02916

PATIENT

DRUGS (37)
  1. BETADINE [Concomitant]
     Indication: INFECTION PROPHYLAXIS
     Dosage: 10 ml, tid SITZ BATH
     Dates: start: 20120601
  2. NYSTATIN [Concomitant]
     Indication: INFECTION PROPHYLAXIS
     Dosage: 10 ml, qid, gargle
     Dates: start: 20120601
  3. MAGNESIUM SULFATE [Concomitant]
     Indication: PROPHYLAXIS
     Dosage: 20 ml, qd, MIV
     Dates: start: 20120530, end: 20120601
  4. CISPLATIN [Suspect]
     Indication: CHEMOTHERAPY
     Dosage: 111 mg, Once
     Route: 042
     Dates: start: 20120531, end: 20120531
  5. CISPLATIN [Suspect]
     Dosage: 111 mg, Once
     Route: 042
     Dates: start: 20120702, end: 20120702
  6. VINCRISTINE SULFATE [Suspect]
     Indication: CHEMOTHERAPY
     Dosage: 2 mg, Once
     Route: 042
     Dates: start: 20120531, end: 20120531
  7. VINCRISTINE SULFATE [Suspect]
     Dosage: 2 mg, Once
     Route: 042
     Dates: start: 20120607, end: 20120607
  8. VINCRISTINE SULFATE [Suspect]
     Dosage: 2 mg, Once
     Route: 042
     Dates: start: 20120702, end: 20120702
  9. CYCLOPHOSPHAMIDE [Suspect]
     Indication: CHEMOTHERAPY
     Dosage: 1490 mg, Once
     Route: 042
     Dates: start: 20120601, end: 20120601
  10. CYCLOPHOSPHAMIDE [Suspect]
     Dosage: 1490 mg, Once
     Route: 042
     Dates: start: 20120602, end: 20120602
  11. CYCLOPHOSPHAMIDE [Suspect]
     Dosage: 1480 mg, Once
     Route: 042
     Dates: start: 20120703, end: 20120704
  12. FUROSEMIDE [Concomitant]
     Indication: PROPHYLAXIS
     Dosage: UNK mg, prn
     Route: 042
     Dates: start: 20120607, end: 20120607
  13. APREPITANT [Suspect]
     Indication: PROPHYLAXIS OF NAUSEA AND VOMITING
     Dosage: 125 mg, Once
     Route: 048
     Dates: start: 20120404, end: 20120404
  14. APREPITANT [Suspect]
     Dosage: 80 mg, qd
     Route: 048
     Dates: start: 20120405, end: 20120406
  15. APREPITANT [Suspect]
     Dosage: 125 mg, Once
     Route: 048
     Dates: start: 20120503, end: 20120503
  16. APREPITANT [Suspect]
     Dosage: 80 mg, qd
     Route: 048
     Dates: start: 20120504, end: 20120505
  17. APREPITANT [Suspect]
     Dosage: 125 mg, Once
     Route: 048
     Dates: start: 20120531, end: 20120531
  18. APREPITANT [Suspect]
     Dosage: 80 mg, qd
     Route: 048
     Dates: start: 20120601, end: 20120602
  19. APREPITANT [Suspect]
     Dosage: 125 mg, Once
     Route: 048
     Dates: start: 20120702, end: 20120702
  20. APREPITANT [Suspect]
     Dosage: 80 mg, qd
     Route: 048
     Dates: start: 20120703, end: 20120704
  21. APREPITANT [Suspect]
     Dosage: 125 mg, Once
     Route: 048
     Dates: start: 20120828, end: 20120828
  22. APREPITANT [Suspect]
     Dosage: 80 mg, qd
     Route: 048
     Dates: start: 20120829, end: 20120830
  23. ONDANSETRON [Suspect]
     Indication: PROPHYLAXIS OF NAUSEA AND VOMITING
     Dosage: 7.27 mg, qpm
     Route: 042
     Dates: start: 20120404, end: 20120404
  24. ONDANSETRON [Suspect]
     Dosage: 7.27 mg, qam
     Route: 042
     Dates: start: 20120405, end: 20120406
  25. ONDANSETRON [Suspect]
     Dosage: 7.65 mg, qpm
     Route: 042
     Dates: start: 20120503, end: 20120503
  26. ONDANSETRON [Suspect]
     Dosage: 7.65 mg, qam
     Route: 042
     Dates: start: 20120504, end: 20120505
  27. ONDANSETRON [Suspect]
     Dosage: 7.77 mg, qpm
     Route: 042
     Dates: start: 20120531, end: 20120531
  28. ONDANSETRON [Suspect]
     Dosage: 7.77 mg, qam
     Route: 042
     Dates: start: 20120601, end: 20120602
  29. ONDANSETRON [Suspect]
     Dosage: 7.68 mg, qpm
     Route: 042
     Dates: start: 20120702, end: 20120702
  30. ONDANSETRON [Suspect]
     Dosage: 7.68 mg, qam
     Route: 042
     Dates: start: 20120703, end: 20120704
  31. ONDANSETRON [Suspect]
     Dosage: 7.35 mg, qam
     Route: 042
     Dates: start: 20120828, end: 20120829
  32. DEXAMETHASONE [Suspect]
     Indication: PROPHYLAXIS
     Dosage: UNK mg, Once
     Route: 042
     Dates: start: 20120531, end: 20120531
  33. DEXAMETHASONE [Suspect]
     Dosage: UNK mg, Once
     Route: 042
     Dates: start: 20120601, end: 20120601
  34. SEPTRIN [Concomitant]
     Indication: ANTIFUNGAL PROPHYLAXIS
     Dosage: 2.5 DF, bid
     Route: 048
     Dates: start: 20120127
  35. AMETOX [Concomitant]
     Indication: DRUG TOXICITY PROPHYLAXIS
     Dosage: UNK g, Once
     Route: 042
     Dates: start: 20120531, end: 20120531
  36. MANNITOL [Concomitant]
     Indication: DRUG TOXICITY PROPHYLAXIS
     Dosage: UNK ml, Once
     Route: 042
     Dates: start: 20120531, end: 20120531
  37. MESNA [Concomitant]
     Indication: PROPHYLAXIS
     Dosage: 500 mg, tid
     Route: 042
     Dates: start: 20120601, end: 20120602

REACTIONS (9)
  - Febrile neutropenia [Recovered/Resolved]
  - Platelet count decreased [None]
  - Productive cough [None]
  - Rhinorrhoea [None]
  - Headache [None]
  - Asthenia [None]
  - Pharyngitis [None]
  - Anaemia [None]
  - Haemosiderosis [None]
